FAERS Safety Report 19656129 (Version 2)
Quarter: 2021Q3

REPORT INFORMATION
  Report Type: Spontaneous
  Country: US (occurrence: US)
  Receive Date: 20210804
  Receipt Date: 20210812
  Transmission Date: 20211014
  Serious: Yes (Hospitalization)
  Sender: FDA-Public Use
  Company Number: US-KARYOPHARM-2021KPT000984

PATIENT

DRUGS (6)
  1. XPOVIO [Suspect]
     Active Substance: SELINEXOR
     Indication: MALIGNANT CONNECTIVE TISSUE NEOPLASM
     Dosage: 60 MG, 2X/WEEK
     Route: 048
     Dates: start: 20210712
  2. DEXAMETHASONE. [Concomitant]
     Active Substance: DEXAMETHASONE
  3. IBUPROFEN. [Concomitant]
     Active Substance: IBUPROFEN
  4. ZOFRAN [Concomitant]
     Active Substance: ONDANSETRON HYDROCHLORIDE
  5. OXYCODONE [Concomitant]
     Active Substance: OXYCODONE
  6. KEYTRUDA [Concomitant]
     Active Substance: PEMBROLIZUMAB

REACTIONS (6)
  - Off label use [Unknown]
  - Infection [Unknown]
  - Pancreatitis [Unknown]
  - Blood glucose increased [Unknown]
  - Abdominal pain [Unknown]
  - Plasma cell myeloma [Unknown]

NARRATIVE: CASE EVENT DATE: 2021
